FAERS Safety Report 7443596-8 (Version None)
Quarter: 2011Q2

REPORT INFORMATION
  Report Type: 
  Country: None (occurrence: None)
  Receive Date: 20110428
  Receipt Date: 20110414
  Transmission Date: 20111010
  Serious: Yes (Other)
  Sender: FDA-Public Use
  Company Number: BE-BAYER-2010-006980

PATIENT
  Age: 70 Year
  Sex: Female

DRUGS (3)
  1. VALIUM NOVUM [Concomitant]
  2. ASPIRINE 100 [Suspect]
     Indication: HYPERTENSION
     Dosage: UNK
     Dates: start: 19890101, end: 20101201
  3. CARDIOASPIRINE [Suspect]
     Dosage: UNK
     Dates: start: 20101201, end: 20101201

REACTIONS (10)
  - DYSPNOEA [None]
  - HYPERGLYCAEMIA [None]
  - HYPERTENSIVE CRISIS [None]
  - HYPERTENSION [None]
  - PRODUCT QUALITY ISSUE [None]
  - REACTION TO DRUG EXCIPIENTS [None]
  - TACHYCARDIA [None]
  - FATIGUE [None]
  - OEDEMA PERIPHERAL [None]
  - MALAISE [None]
